FAERS Safety Report 9448912 (Version 1)
Quarter: 2013Q3

REPORT INFORMATION
  Report Type: Spontaneous
  Country: GB (occurrence: GB)
  Receive Date: 20130808
  Receipt Date: 20130808
  Transmission Date: 20140515
  Serious: Yes (Other)
  Sender: FDA-Public Use
  Company Number: GB-BAYER-2013-094468

PATIENT
  Sex: Female

DRUGS (1)
  1. MICROLITE (ETHINYL ESTRADIOL\LEVONORGESTREL) [Suspect]
     Dosage: UNK
     Dates: start: 2012

REACTIONS (2)
  - Inflammation [None]
  - Haemorrhage urinary tract [None]
